FAERS Safety Report 8099981-7 (Version None)
Quarter: 2012Q1

REPORT INFORMATION
  Report Type: 
  Country: None (occurrence: None)
  Receive Date: 20120129
  Receipt Date: 20111217
  Transmission Date: 20120608
  Serious: No
  Sender: FDA-Public Use
  Company Number: US-ABBOTT-11P-163-0878696-00

PATIENT
  Age: 62 Year
  Sex: Female

DRUGS (12)
  1. NAPROSYN [Suspect]
     Indication: RHEUMATOID ARTHRITIS
  2. NAPROSYN [Concomitant]
     Indication: PAIN
  3. LISINOPRIL [Concomitant]
     Indication: HYPERTENSION
  4. OMEPRAZOLE [Concomitant]
     Indication: IMPAIRED GASTRIC EMPTYING
  5. PROVIGIL [Concomitant]
     Indication: NARCOLEPSY
  6. SIMVASTATIN [Concomitant]
     Indication: BLOOD CHOLESTEROL INCREASED
  7. HUMIRA [Suspect]
     Indication: RHEUMATOID ARTHRITIS
     Dates: start: 20110701, end: 20111201
  8. XENAZINE [Concomitant]
     Indication: TARDIVE DYSKINESIA
  9. NAPROSYN [Concomitant]
     Indication: FIBROMYALGIA
  10. HYDROCHLOROTHIAZIDE [Concomitant]
     Indication: HYPERTENSION
  11. HYDROCODONE BITARTRATE [Concomitant]
     Indication: PAIN
  12. AMBIEN [Concomitant]
     Indication: INSOMNIA

REACTIONS (6)
  - NASOPHARYNGITIS [None]
  - MUSCLE SPASMS [None]
  - CONTUSION [None]
  - DRUG DOSE OMISSION [None]
  - ARTHRALGIA [None]
  - MUSCULAR WEAKNESS [None]
